FAERS Safety Report 7498344-2 (Version None)
Quarter: 2011Q2

REPORT INFORMATION
  Report Type: 
  Country: None (occurrence: None)
  Receive Date: 20110524
  Receipt Date: 20101130
  Transmission Date: 20111010
  Serious: Yes (Other)
  Sender: FDA-Public Use
  Company Number: US-BAYER-201032562NA

PATIENT
  Age: 45 Year
  Sex: Female
  Weight: 71.02 kg

DRUGS (22)
  1. BENTYL [Concomitant]
     Dosage: 20 MG, BID
     Route: 048
     Dates: start: 20081002
  2. ADIPEX [Concomitant]
     Dosage: UNK
     Dates: start: 20081002
  3. ZANTAC [Concomitant]
     Indication: CHEST DISCOMFORT
  4. IBUPROFEN [Concomitant]
  5. RELAFEN [Concomitant]
     Dosage: 750 MG, UNK
     Route: 048
     Dates: start: 20081211
  6. ULTRAM [Concomitant]
     Dosage: 50 MG, TID
     Dates: start: 20081002
  7. BUPROPION HYDROCHLORIDE [Concomitant]
     Dosage: 150 MG, QD
     Route: 048
     Dates: start: 20081002
  8. ASPIRIN [Concomitant]
     Dosage: UNK UNK, QD
     Dates: start: 20081002
  9. ATIVAN [Concomitant]
     Dosage: 0.5 MG, TID
     Dates: start: 20081211
  10. INDERAL [Concomitant]
  11. SKELAXIN [Concomitant]
     Dosage: 800 MG, QID
     Route: 048
     Dates: start: 20081002
  12. PREMARIN [Concomitant]
     Dosage: UNK UNK, QD
     Dates: start: 20081201
  13. TRAMADOL HCL [Concomitant]
  14. YAZ [Suspect]
     Indication: PRODUCT USED FOR UNKNOWN INDICATION
     Dosage: 3 SAMPLES RECEIVED IN AUG 2008
     Route: 048
     Dates: start: 20080801, end: 20081201
  15. LISINOPRIL [Concomitant]
     Indication: HYPERTENSION
     Dosage: 5 MG, UNK
  16. MOTRIN [Concomitant]
     Indication: PAIN
     Dosage: 800 MG, PRN
     Route: 048
     Dates: start: 20081211
  17. LORAZEPAM [Concomitant]
     Dosage: UNK
     Dates: start: 20081002
  18. YASMIN [Suspect]
     Indication: PRODUCT USED FOR UNKNOWN INDICATION
     Route: 048
     Dates: start: 20080801
  19. KLONOPIN [Concomitant]
     Dosage: UNK
     Dates: start: 20081002
  20. MIDRIN [Concomitant]
  21. NAPROSYN [Concomitant]
  22. EXCEDRIN ASPIRIN FREE [Concomitant]

REACTIONS (5)
  - ACTIVITIES OF DAILY LIVING IMPAIRED [None]
  - CONFUSIONAL STATE [None]
  - CEREBROVASCULAR ACCIDENT [None]
  - SPEECH DISORDER [None]
  - MEMORY IMPAIRMENT [None]
